FAERS Safety Report 20988048 (Version 1)
Quarter: 2022Q2

REPORT INFORMATION
  Report Type: Spontaneous
  Country: US (occurrence: None)
  Receive Date: 20220620
  Receipt Date: 20220620
  Transmission Date: 20220721
  Serious: Yes (Disabling)
  Sender: FDA-Public Use
  Company Number: None

PATIENT
  Age: 52 Year
  Sex: Female
  Weight: 83.7 kg

DRUGS (6)
  1. DIVALPROEX SODIUM DR [Suspect]
     Active Substance: DIVALPROEX SODIUM
     Indication: Bipolar I disorder
     Dosage: OTHER QUANTITY : 3 TABLET(S);?OTHER FREQUENCY : 1 MORNING, 2 NIGHT;?
     Route: 048
     Dates: start: 20220513, end: 20220613
  2. Folic Acid 1 MG [Concomitant]
  3. LISINOPRIL [Concomitant]
     Active Substance: LISINOPRIL
  4. AMLODIPINE BESYLATE [Concomitant]
     Active Substance: AMLODIPINE BESYLATE
  5. Estradiol 2 MG [Concomitant]
  6. Cetrizine Hydrochloride 10 MG [Concomitant]

REACTIONS (4)
  - Diarrhoea [None]
  - Faeces discoloured [None]
  - Frequent bowel movements [None]
  - Pancreatic disorder [None]

NARRATIVE: CASE EVENT DATE: 20220620
